FAERS Safety Report 9693336 (Version 7)
Quarter: 2014Q4

REPORT INFORMATION
  Report Type: Spontaneous
  Country: TW (occurrence: TW)
  Receive Date: 20131118
  Receipt Date: 20141114
  Transmission Date: 20150529
  Serious: Yes (Hospitalization, Other)
  Sender: FDA-Public Use
  Company Number: TW-PFIZER INC-2013324071

PATIENT
  Age: 84 Year
  Sex: Male

DRUGS (1)
  1. SUTENT [Suspect]
     Active Substance: SUNITINIB MALATE
     Indication: RENAL CELL CARCINOMA
     Dosage: 50 MG ONCE DAILY FOR 2 WEEKS ON AND ONE WEEK OFF
     Route: 048
     Dates: start: 20130705, end: 20131030

REACTIONS (11)
  - Oesophageal ulcer [Recovering/Resolving]
  - Acute kidney injury [Unknown]
  - Fall [Unknown]
  - Disease progression [Unknown]
  - Renal cell carcinoma [Unknown]
  - Acidosis [Unknown]
  - Asthenia [Unknown]
  - Diarrhoea [Unknown]
  - Urinary tract infection [Recovered/Resolved]
  - Shock [Unknown]
  - Decreased appetite [Unknown]

NARRATIVE: CASE EVENT DATE: 2013
